FAERS Safety Report 14176990 (Version 1)
Quarter: 2017Q4

REPORT INFORMATION
  Report Type: Spontaneous
  Country: US (occurrence: US)
  Receive Date: 20171110
  Receipt Date: 20171110
  Transmission Date: 20180321
  Serious: Yes (Disabling)
  Sender: FDA-Public Use
  Company Number: None

PATIENT
  Age: 69 Year
  Sex: Female
  Weight: 74.25 kg

DRUGS (5)
  1. MYBERTIC MOBIC [Concomitant]
  2. XIIDRA [Suspect]
     Active Substance: LIFITEGRAST
     Indication: VISION BLURRED
     Dosage: ?          QUANTITY:60 DROP(S);?
     Route: 047
     Dates: start: 20171106, end: 20171109
  3. SYNTHROID [Concomitant]
     Active Substance: LEVOTHYROXINE SODIUM
  4. CALCIUM [Concomitant]
     Active Substance: CALCIUM
  5. MVI [Concomitant]
     Active Substance: VITAMINS

REACTIONS (2)
  - Dry eye [None]
  - Diplopia [None]

NARRATIVE: CASE EVENT DATE: 20171108
